FAERS Safety Report 20099103 (Version 1)
Quarter: 2021Q4

REPORT INFORMATION
  Report Type: Spontaneous
  Country: US (occurrence: None)
  Receive Date: 20211121
  Receipt Date: 20211121
  Transmission Date: 20220304
  Serious: No
  Sender: FDA-Public Use
  Company Number: None

PATIENT

DRUGS (1)
  1. PHENOBARBITAL [Suspect]
     Active Substance: PHENOBARBITAL
     Dosage: OTHER ROUTE : INJECTION;?
     Route: 050

REACTIONS (3)
  - Product packaging quantity issue [None]
  - Packaging design issue [None]
  - Product label issue [None]
